FAERS Safety Report 6520965-1 (Version None)
Quarter: 2009Q4

REPORT INFORMATION
  Report Type: 
  Country: None (occurrence: None)
  Receive Date: 20091229
  Receipt Date: 20091216
  Transmission Date: 20100525
  Serious: Yes (Life-Threatening, Hospitalization)
  Sender: FDA-Public Use
  Company Number: GB-AMGEN-US372392

PATIENT
  Sex: Female
  Weight: 120 kg

DRUGS (8)
  1. ENBREL [Suspect]
     Indication: PSORIASIS
     Route: 058
     Dates: start: 20080201, end: 20090201
  2. ENBREL [Suspect]
     Route: 058
     Dates: start: 20090201, end: 20091101
  3. HUMIRA [Suspect]
     Indication: PSORIASIS
     Route: 058
     Dates: start: 20090201, end: 20090801
  4. PIOGLITAZONE HYDROCHLORIDE [Concomitant]
     Indication: DIABETES MELLITUS
     Route: 048
     Dates: start: 19990801
  5. AMITRIPTYLINE HYDROCHLORIDE [Concomitant]
     Indication: ANXIETY
     Route: 048
     Dates: start: 20010801
  6. METFORMIN [Concomitant]
     Indication: DIABETES MELLITUS
     Route: 048
     Dates: start: 19950801
  7. SIMVASTATIN [Concomitant]
     Indication: HYPERCHOLESTEROLAEMIA
     Route: 048
     Dates: start: 19890801
  8. ENALAPRIL [Concomitant]
     Indication: HYPERTENSION
     Route: 048
     Dates: start: 19890801

REACTIONS (2)
  - ENDOMETRIAL CANCER [None]
  - HAEMATURIA [None]
